FAERS Safety Report 4584081-0 (Version None)
Quarter: 2005Q1

REPORT INFORMATION
  Report Type: 
  Country: None (occurrence: None)
  Receive Date: 20050216
  Receipt Date: 20050104
  Transmission Date: 20050727
  Serious: Yes (Hospitalization)
  Sender: FDA-Public Use
  Company Number: US-BRISTOL-MYERS SQUIBB COMPANY-12812467

PATIENT
  Age: 55 Year
  Sex: Female
  Weight: 56 kg

DRUGS (5)
  1. CETUXIMAB [Suspect]
     Indication: OESOPHAGEAL CARCINOMA
     Dosage: C1D8=390 MG
     Route: 042
     Dates: start: 20041221, end: 20041221
  2. TAXOL [Suspect]
     Indication: OESOPHAGEAL CARCINOMA
     Dosage: C1D8= 70MG. 21-DEC-04 (95MG).
     Route: 042
     Dates: start: 20041221, end: 20041221
  3. CARBOPLATIN [Suspect]
     Indication: OESOPHAGEAL CARCINOMA
     Dosage: AUC=2.  LAST ADMINISTERED ON 21-DEC-04
     Route: 042
     Dates: start: 20041221
  4. RADIATION THERAPY [Suspect]
     Indication: OESOPHAGEAL CARCINOMA
     Dosage: PT REC'D THERAPY ON 21-DEC-04 THROUGH 23-DEC-04. RESUMED ON 27-DEC-04
     Dates: start: 20041221
  5. PROTONIX [Concomitant]
     Route: 048

REACTIONS (2)
  - CHEST DISCOMFORT [None]
  - CHEST PAIN [None]
